FAERS Safety Report 6220685-7 (Version None)
Quarter: 2009Q2

REPORT INFORMATION
  Report Type: 
  Country: None (occurrence: None)
  Receive Date: 20090610
  Receipt Date: 20090605
  Transmission Date: 20091009
  Serious: Yes (Hospitalization)
  Sender: FDA-Public Use
  Company Number: AU-ASTRAZENECA-2009SE02075

PATIENT

DRUGS (3)
  1. CRESTOR [Suspect]
     Route: 048
  2. AMOXICILLIN [Concomitant]
  3. CLAVULANATE POTASSIUM [Concomitant]

REACTIONS (1)
  - HEPATITIS [None]
